FAERS Safety Report 6157151-3 (Version None)
Quarter: 2009Q2

REPORT INFORMATION
  Report Type: 
  Country: None (occurrence: None)
  Receive Date: 20090416
  Receipt Date: 20090406
  Transmission Date: 20091009
  Serious: Yes (Other)
  Sender: FDA-Public Use
  Company Number: IT-ELI_LILLY_AND_COMPANY-IT200901002598

PATIENT
  Sex: Female

DRUGS (5)
  1. BYETTA [Suspect]
     Indication: TYPE 2 DIABETES MELLITUS
     Dosage: 5 UG, DAILY (1/D)
     Route: 058
     Dates: start: 20081018, end: 20081101
  2. BYETTA [Suspect]
     Dosage: 10 UG, DAILY (1/D)
     Route: 058
     Dates: start: 20081101
  3. BYETTA [Suspect]
     Dosage: 5 UG, DAILY (1/D)
     Route: 058
     Dates: end: 20090129
  4. METFORMIN HCL [Concomitant]
     Dosage: 500 MG, (MAXIMUM DOSAGE EVENING)
     Route: 048
     Dates: start: 20081018, end: 20090129
  5. INSULIN [Concomitant]

REACTIONS (9)
  - ABDOMINAL DISCOMFORT [None]
  - ABDOMINAL DISTENSION [None]
  - ABDOMINAL PAIN [None]
  - BONE PAIN [None]
  - NAUSEA [None]
  - PANCREATIC DISORDER [None]
  - PANCREATIC ENZYMES INCREASED [None]
  - VOMITING [None]
  - WEIGHT INCREASED [None]
